FAERS Safety Report 23808586 (Version 1)
Quarter: 2024Q2

REPORT INFORMATION
  Report Type: Spontaneous
  Country: US (occurrence: US)
  Receive Date: 20240502
  Receipt Date: 20240502
  Transmission Date: 20240716
  Serious: No
  Sender: FDA-Public Use
  Company Number: US-JNJFOC-20240441641

PATIENT
  Age: 36 Year
  Sex: Male

DRUGS (2)
  1. TYLENOL [Suspect]
     Active Substance: ACETAMINOPHEN
     Indication: Back injury
     Route: 065
     Dates: start: 202402, end: 2024
  2. CAPLYTA [Suspect]
     Active Substance: LUMATEPERONE
     Indication: Bipolar disorder
     Route: 048
     Dates: start: 202308

REACTIONS (4)
  - Movement disorder [Unknown]
  - Eye movement disorder [Unknown]
  - Musculoskeletal stiffness [Unknown]
  - Dyskinesia [Unknown]
